FAERS Safety Report 6914444-7 (Version None)
Quarter: 2010Q3

REPORT INFORMATION
  Report Type: 
  Country: None (occurrence: None)
  Receive Date: 20100809
  Receipt Date: 20100729
  Transmission Date: 20110219
  Serious: Yes (Other)
  Sender: FDA-Public Use
  Company Number: US-PFIZER INC-2010096250

PATIENT
  Sex: Female
  Weight: 52 kg

DRUGS (7)
  1. XALATAN [Suspect]
     Indication: GLAUCOMA
     Dosage: ONE DROP, DAILY, IN EACH EYE AT NIGHT
     Route: 047
     Dates: start: 20100621
  2. ZOCOR [Concomitant]
     Dosage: UNK
  3. SYNTHROID [Concomitant]
     Dosage: UNK
  4. NEXIUM [Concomitant]
     Indication: GASTROOESOPHAGEAL REFLUX DISEASE
     Dosage: UNK, AS NEEDED
  5. KLONOPIN [Concomitant]
     Indication: SLEEP DISORDER
     Dosage: ONCE DAILY AT NIGHT
  6. ESGIC [Concomitant]
     Indication: MIGRAINE
     Dosage: UNK, AS NEEDED
  7. TOPROL-XL [Concomitant]
     Indication: PALPITATIONS
     Dosage: 25 MG, UNK

REACTIONS (1)
  - INTRAOCULAR PRESSURE INCREASED [None]
